FAERS Safety Report 6734586-9 (Version None)
Quarter: 2010Q2

REPORT INFORMATION
  Report Type: 
  Country: None (occurrence: None)
  Receive Date: 20100513
  Receipt Date: 20091014
  Transmission Date: 20101027
  Serious: Yes (Other)
  Sender: FDA-Public Use
  Company Number: 2009SP030563

PATIENT
  Sex: Male

DRUGS (2)
  1. ZEMURON [Suspect]
     Indication: ENDOTRACHEAL INTUBATION
     Dates: start: 20091014
  2. ZEMURON [Suspect]

REACTIONS (2)
  - DRUG EFFECT DECREASED [None]
  - HYPERTENSION [None]
